FAERS Safety Report 9250541 (Version 1)
Quarter: 2013Q1

REPORT INFORMATION
  Report Type: Spontaneous
  Country: US (occurrence: None)
  Receive Date: 20130305
  Receipt Date: 20130305
  Transmission Date: 20140127
  Serious: Yes (Hospitalization)
  Sender: FDA-Public Use
  Company Number: 163-2188012040469

PATIENT
  Age: 60 Year
  Sex: Female
  Weight: 55.34 kg

DRUGS (12)
  1. REVLIMID (LENALIDOMIDE) [Suspect]
     Indication: PLASMA CELL MYELOMA
     Route: 048
     Dates: start: 20090404
  2. AMBIEN (ZOLPIDEM TARTRATE) [Concomitant]
  3. FLUTICASONE (FLUTICASONE) [Concomitant]
  4. NORVASC (AMLODIPIE BESILATE) [Concomitant]
  5. LOSARTAN/HCT (HYZAAR) [Concomitant]
  6. METOPROLOL (METOPROLOL) [Concomitant]
  7. ASPIRIN LOW (ACETYLSALICYLIC ACID) [Concomitant]
  8. CALCIUM+VITAMIN D (LEKOVIT CA) [Concomitant]
  9. VITAMIN D3 (ERGOCALCIFEROL) [Concomitant]
  10. STOOL SOFTNER (DOCUSATE SODIUM) [Concomitant]
  11. EXFORGE (AMLODIPINE W/ VALSARTAN) [Concomitant]
  12. TOPROL (METOPROLOL SUCCINATE) [Concomitant]

REACTIONS (3)
  - Pneumonia [None]
  - Full blood count decreased [None]
  - Neuropathy peripheral [None]
